FAERS Safety Report 14484078 (Version 2)
Quarter: 2018Q1

REPORT INFORMATION
  Report Type: Spontaneous
  Country: BR (occurrence: BR)
  Receive Date: 20180205
  Receipt Date: 20180326
  Transmission Date: 20180509
  Serious: Yes (Other)
  Sender: FDA-Public Use
  Company Number: BR-AMGEN-BRASP2018015157

PATIENT
  Age: 59 Year
  Sex: Female

DRUGS (1)
  1. ENBREL [Suspect]
     Active Substance: ETANERCEPT
     Indication: PRODUCT USED FOR UNKNOWN INDICATION
     Dosage: UNK
     Route: 065
     Dates: start: 201707

REACTIONS (18)
  - Finger deformity [Not Recovered/Not Resolved]
  - Visual impairment [Unknown]
  - Ankylosing spondylitis [Unknown]
  - Swelling [Not Recovered/Not Resolved]
  - Anger [Unknown]
  - Pain [Unknown]
  - Dyspnoea [Unknown]
  - Arthritis [Unknown]
  - Peripheral swelling [Not Recovered/Not Resolved]
  - Mobility decreased [Not Recovered/Not Resolved]
  - Cardiac disorder [Unknown]
  - Fatigue [Unknown]
  - Photophobia [Not Recovered/Not Resolved]
  - Memory impairment [Unknown]
  - Vision blurred [Not Recovered/Not Resolved]
  - Joint swelling [Not Recovered/Not Resolved]
  - Nervousness [Unknown]
  - Infection [Unknown]
